FAERS Safety Report 13240810 (Version 1)
Quarter: 2017Q1

REPORT INFORMATION
  Report Type: Spontaneous
  Country: US (occurrence: US)
  Receive Date: 20170216
  Receipt Date: 20170216
  Transmission Date: 20170428
  Serious: Yes (Other)
  Sender: FDA-Public Use
  Company Number: US-JNJFOC-20170209716

PATIENT

DRUGS (1)
  1. IBRUTINIB [Suspect]
     Active Substance: IBRUTINIB
     Indication: HAIRY CELL LEUKAEMIA
     Dosage: 15 PATIENTS WITH 420 MG, 13 PATIENTS WITH 840 MG, IN 28-DAY CYCLES
     Route: 048

REACTIONS (17)
  - Thrombocytopenia [Unknown]
  - Diarrhoea [Unknown]
  - Contusion [Unknown]
  - Neutropenia [Unknown]
  - Hypertension [Unknown]
  - Infection [Unknown]
  - Off label use [Unknown]
  - Lymphopenia [Unknown]
  - Rash [Unknown]
  - Product use issue [Unknown]
  - Myalgia [Unknown]
  - Lung infection [Unknown]
  - Atrial fibrillation [Unknown]
  - Hypophosphataemia [Unknown]
  - Nausea [Unknown]
  - Fatigue [Unknown]
  - Vomiting [Unknown]
